FAERS Safety Report 4445054-1 (Version None)
Quarter: 2004Q3

REPORT INFORMATION
  Report Type: 
  Country: None (occurrence: None)
  Receive Date: 20040903
  Receipt Date: 20040830
  Transmission Date: 20050211
  Serious: No
  Sender: FDA-Public Use
  Company Number: TPA2004A00642

PATIENT
  Age: 70 Year
  Sex: Male
  Weight: 90.2658 kg

DRUGS (6)
  1. ACTOS [Suspect]
     Indication: DIABETES MELLITUS NON-INSULIN-DEPENDENT
     Dosage: 30 MG, 1 IN 1 D, PER ORAL
     Route: 048
     Dates: start: 20040101, end: 20040213
  2. ACTOS [Suspect]
     Indication: DIABETES MELLITUS NON-INSULIN-DEPENDENT
     Dosage: 30 MG, 1 IN 1 D, PER ORAL
     Route: 048
     Dates: start: 20030301
  3. GLYBURIDE [Concomitant]
  4. LOTREL [Concomitant]
  5. HYTRIN [Concomitant]
  6. LOPRESSOR [Concomitant]

REACTIONS (3)
  - DERMATITIS BULLOUS [None]
  - DRUG ERUPTION [None]
  - PEMPHIGOID [None]
